FAERS Safety Report 19466705 (Version 1)
Quarter: 2021Q2

REPORT INFORMATION
  Report Type: Spontaneous
  Country: US (occurrence: US)
  Receive Date: 20210628
  Receipt Date: 20210628
  Transmission Date: 20210717
  Serious: No
  Sender: FDA-Public Use
  Company Number: US-TEVA-2021-US-1926458

PATIENT
  Age: 88 Year
  Sex: Male

DRUGS (1)
  1. ALBUTEROL SULFATE HFA [Suspect]
     Active Substance: ALBUTEROL SULFATE
     Dosage: INHALATION ? AEROSOL
     Route: 055

REACTIONS (4)
  - Poor quality product administered [Unknown]
  - Product contamination physical [Unknown]
  - Product container seal issue [Unknown]
  - Headache [Unknown]

NARRATIVE: CASE EVENT DATE: 202106
